FAERS Safety Report 19230016 (Version 1)
Quarter: 2021Q2

REPORT INFORMATION
  Report Type: Spontaneous
  Country: ID (occurrence: ID)
  Receive Date: 20210506
  Receipt Date: 20210506
  Transmission Date: 20210717
  Serious: Yes (Death, Hospitalization, Other)
  Sender: FDA-Public Use
  Company Number: ID-ASTRAZENECA-2021A389870

PATIENT

DRUGS (5)
  1. BRILINTA [Suspect]
     Active Substance: TICAGRELOR
     Route: 048
     Dates: start: 20210423
  2. ASPILET [Concomitant]
     Active Substance: ASPIRIN
  3. ENOXAPARIN [Concomitant]
     Active Substance: ENOXAPARIN
  4. DOBUTAMINE [Concomitant]
     Active Substance: DOBUTAMINE HYDROCHLORIDE
     Dosage: 5 MCG/ KG WEIGHT/MIN
  5. ATORVASTATIN [Concomitant]
     Active Substance: ATORVASTATIN

REACTIONS (20)
  - Gastric perforation [Fatal]
  - Shock haemorrhagic [Fatal]
  - Haemoglobin decreased [Fatal]
  - Loss of consciousness [Fatal]
  - Conjunctival pallor [Fatal]
  - Peptic ulcer haemorrhage [Fatal]
  - Hypotension [Fatal]
  - Haemodynamic instability [Fatal]
  - Hypovolaemic shock [Fatal]
  - Angina pectoris [Fatal]
  - Pain [Fatal]
  - Coronary artery disease [Fatal]
  - Blood loss anaemia [Fatal]
  - Pulseless electrical activity [Fatal]
  - Arteriosclerosis coronary artery [Fatal]
  - Discoloured vomit [Fatal]
  - Peripheral coldness [Fatal]
  - Cardiac arrest [Fatal]
  - Coronary artery occlusion [Fatal]
  - Upper gastrointestinal haemorrhage [Fatal]
